FAERS Safety Report 5705891-X (Version None)
Quarter: 2008Q2

REPORT INFORMATION
  Report Type: 
  Country: None (occurrence: None)
  Receive Date: 20080415
  Receipt Date: 20080404
  Transmission Date: 20081010
  Serious: Yes (Hospitalization)
  Sender: FDA-Public Use
  Company Number: US-GILEAD-2008-0015915

PATIENT
  Sex: Male

DRUGS (16)
  1. LETAIRIS [Suspect]
     Indication: PULMONARY HYPERTENSION
     Route: 048
     Dates: start: 20071016, end: 20080303
  2. PREDNISONE [Concomitant]
     Route: 048
  3. ASPIRIN [Concomitant]
     Route: 048
  4. COREG [Concomitant]
     Route: 048
  5. COUMADIN [Concomitant]
     Route: 048
  6. DIGITEK [Concomitant]
     Route: 048
  7. DUONEB [Concomitant]
     Dosage: 3 MG-0.5 MG/3 ML, 1 PUFF
  8. FERROUS SULFATE TAB [Concomitant]
     Route: 048
  9. FINASTERIDE [Concomitant]
     Route: 048
  10. K-DUR [Concomitant]
     Route: 048
  11. OMEPRAZOLE [Concomitant]
     Route: 048
  12. OXYGEN [Concomitant]
     Route: 055
  13. PHOSLO [Concomitant]
     Route: 048
  14. SIMVASTIN [Concomitant]
     Route: 048
  15. TERAZOSIN HCL [Concomitant]
     Route: 048
  16. TYLENOL (CAPLET) [Concomitant]

REACTIONS (3)
  - CARDIAC FAILURE CONGESTIVE [None]
  - CARDIAC VALVE REPLACEMENT COMPLICATION [None]
  - OEDEMA PERIPHERAL [None]
